FAERS Safety Report 10145672 (Version 1)
Quarter: 2014Q2

REPORT INFORMATION
  Report Type: Spontaneous
  Country: US (occurrence: US)
  Receive Date: 20140501
  Receipt Date: 20140501
  Transmission Date: 20141212
  Serious: No
  Sender: FDA-Public Use
  Company Number: US-ABBVIE-13P-163-1137819-00

PATIENT
  Sex: Male

DRUGS (6)
  1. CREON [Suspect]
     Indication: PANCREATITIS CHRONIC
     Dosage: TWO EACH MEAL
     Route: 048
  2. ALLOPURINOL [Suspect]
     Indication: GOUT
     Dosage: TOOK FOR MANY YEARS
  3. LIPITOR [Concomitant]
     Indication: PRODUCT USED FOR UNKNOWN INDICATION
  4. NEXIUM [Concomitant]
     Indication: PRODUCT USED FOR UNKNOWN INDICATION
  5. COLACE [Concomitant]
     Indication: PRODUCT USED FOR UNKNOWN INDICATION
  6. METOPROLOL [Concomitant]
     Indication: PRODUCT USED FOR UNKNOWN INDICATION

REACTIONS (1)
  - Stomatitis [Recovered/Resolved]
